FAERS Safety Report 6079780-8 (Version None)
Quarter: 2009Q1

REPORT INFORMATION
  Report Type: 
  Country: None (occurrence: None)
  Receive Date: 20090212
  Receipt Date: 20090204
  Transmission Date: 20090719
  Serious: Yes (Hospitalization)
  Sender: FDA-Public Use
  Company Number: 1000003887

PATIENT
  Age: 48 Year
  Sex: Female

DRUGS (4)
  1. MEMANTINE HCL [Suspect]
     Dosage: 2 DOSAGE FORMS (1 DOSAGE FORMS, 2 IN 1 D), ORAL
     Route: 048
  2. EXELON [Suspect]
     Dosage: TOPICAL
     Route: 061
  3. LEVOTHYROX [Concomitant]
  4. GARDENAL [Concomitant]

REACTIONS (5)
  - DERMATITIS BULLOUS [None]
  - LIP HAEMORRHAGE [None]
  - MOUTH HAEMORRHAGE [None]
  - PURPURA [None]
  - THROMBOCYTOPENIA [None]
